FAERS Safety Report 5237686-8 (Version None)
Quarter: 2007Q1

REPORT INFORMATION
  Report Type: 
  Country: None (occurrence: None)
  Receive Date: 20070214
  Receipt Date: 20070131
  Transmission Date: 20070707
  Serious: Yes (Hospitalization)
  Sender: FDA-Public Use
  Company Number: HR-ELI_LILLY_AND_COMPANY-HR200702000050

PATIENT
  Age: 60 Year
  Sex: Female

DRUGS (3)
  1. EVISTA [Suspect]
     Indication: OSTEOPOROSIS
     Dosage: 60 MG, DAILY (1/D)
     Route: 048
     Dates: start: 20050101, end: 20070124
  2. CALCIUM [Concomitant]
     Indication: OSTEOPOROSIS
     Route: 048
     Dates: start: 20050101
  3. VITAMIN D [Concomitant]
     Indication: OSTEOPOROSIS
     Route: 048
     Dates: start: 20050101

REACTIONS (2)
  - DEEP VEIN THROMBOSIS [None]
  - SYNOVIAL RUPTURE [None]
